FAERS Safety Report 4439022-3 (Version None)
Quarter: 2004Q3

REPORT INFORMATION
  Report Type: 
  Country: None (occurrence: None)
  Receive Date: 20040901
  Receipt Date: 20040825
  Transmission Date: 20050211
  Serious: Yes (Hospitalization, Other)
  Sender: FDA-Public Use
  Company Number: US-BRISTOL-MYERS SQUIBB COMPANY-12682720

PATIENT
  Age: 70 Year
  Sex: Female

DRUGS (14)
  1. CARBOPLATIN [Suspect]
     Indication: OVARIAN CANCER
     Dosage: START DATE:  08-OCT-2003
     Route: 042
     Dates: start: 20040211, end: 20040211
  2. PACLITAXEL [Suspect]
     Indication: OVARIAN CANCER
     Dosage: START DATE:  08-OCT-2003
     Route: 042
     Dates: start: 20040211, end: 20040211
  3. PREMARIN [Concomitant]
  4. ACIPHEX [Concomitant]
  5. COUMADIN [Concomitant]
     Dates: start: 20031008
  6. SYNTHROID [Concomitant]
  7. NASONEX [Concomitant]
  8. LEXAPRO [Concomitant]
     Dates: start: 20031028
  9. ATIVAN [Concomitant]
     Dates: start: 20031010
  10. KYTRIL [Concomitant]
     Dates: start: 20031008
  11. ZANTAC [Concomitant]
     Dates: start: 20031008
  12. BENADRYL [Concomitant]
     Dates: start: 20031008
  13. COMPAZINE [Concomitant]
     Dates: start: 20031008
  14. PROTONIX [Concomitant]

REACTIONS (9)
  - ANOREXIA [None]
  - ASCITES [None]
  - HEPATIC LESION [None]
  - ILEUS PARALYTIC [None]
  - MALIGNANT NEOPLASM PROGRESSION [None]
  - NAUSEA [None]
  - OVARIAN CANCER [None]
  - SMALL INTESTINAL OBSTRUCTION [None]
  - VOMITING [None]
